FAERS Safety Report 14154476 (Version 1)
Quarter: 2017Q4

REPORT INFORMATION
  Report Type: Spontaneous
  Country: US (occurrence: US)
  Receive Date: 20171102
  Receipt Date: 20171102
  Transmission Date: 20180321
  Serious: No
  Sender: FDA-Public Use
  Company Number: US-SUNOVION-2017SUN004626

PATIENT
  Sex: Female

DRUGS (2)
  1. SAPHRIS [Concomitant]
     Active Substance: ASENAPINE MALEATE
  2. LATUDA [Suspect]
     Active Substance: LURASIDONE HYDROCHLORIDE
     Indication: BIPOLAR I DISORDER
     Route: 048

REACTIONS (2)
  - Bipolar I disorder [Unknown]
  - Drug ineffective [Unknown]
